FAERS Safety Report 22294100 (Version 1)
Quarter: 2023Q2

REPORT INFORMATION
  Report Type: Spontaneous
  Country: US (occurrence: US)
  Receive Date: 20230508
  Receipt Date: 20230508
  Transmission Date: 20230721
  Serious: Yes (Death, Other)
  Sender: FDA-Public Use
  Company Number: US-BRISTOL-MYERS SQUIBB COMPANY-2023-063855

PATIENT
  Age: 69 Year
  Sex: Male
  Weight: 89.36 kg

DRUGS (1)
  1. LENALIDOMIDE [Suspect]
     Active Substance: LENALIDOMIDE
     Indication: Plasma cell myeloma
     Dosage: DAILY FOR DAYS 1-14, EVERY 21 DAYS
     Route: 048
     Dates: start: 20230123, end: 20230503

REACTIONS (2)
  - Death [Fatal]
  - Off label use [Unknown]
